FAERS Safety Report 5973224-X (Version None)
Quarter: 2008Q4

REPORT INFORMATION
  Report Type: 
  Country: None (occurrence: None)
  Receive Date: 20081201
  Receipt Date: 20081120
  Transmission Date: 20090506
  Serious: Yes (Other)
  Sender: FDA-Public Use
  Company Number: IT-JNJCH-2008055474

PATIENT

DRUGS (1)
  1. ASPIRIN [Suspect]
     Indication: VASCULAR GRAFT
     Dosage: TEXT:UNSPECIFIED
     Route: 048

REACTIONS (2)
  - HYPOXIA [None]
  - PULMONARY EMBOLISM [None]
